FAERS Safety Report 5165821-9 (Version None)
Quarter: 2006Q4

REPORT INFORMATION
  Report Type: 
  Country: None (occurrence: None)
  Receive Date: 20061128
  Receipt Date: 20061115
  Transmission Date: 20070319
  Serious: Yes (Other)
  Sender: FDA-Public Use
  Company Number: 2006141387

PATIENT
  Age: 72 Year
  Sex: Female
  Weight: 55.7924 kg

DRUGS (12)
  1. LIPITOR [Suspect]
     Indication: BLOOD CHOLESTEROL INCREASED
     Dosage: 20 MG (20 MG, 1 IN 1 D)
     Dates: end: 20061001
  2. CHANTIX [Suspect]
     Indication: SMOKING CESSATION THERAPY
     Dates: start: 20061017
  3. INSULIN [Concomitant]
  4. PLAVIX [Concomitant]
  5. HYZAAR [Concomitant]
  6. GLYBURIDE [Concomitant]
  7. AVANDIA [Concomitant]
  8. LASIX [Concomitant]
  9. POTASSIUM ACETATE [Concomitant]
  10. AMITRIPTYLINE HCL [Concomitant]
  11. CALCIUM [Concomitant]
  12. BACTRIM [Concomitant]

REACTIONS (10)
  - ABDOMINAL DISTENSION [None]
  - BUNION [None]
  - CATARACT [None]
  - COMPUTERISED TOMOGRAM ABNORMAL [None]
  - GALLBLADDER DISORDER [None]
  - GASTROOESOPHAGEAL REFLUX DISEASE [None]
  - JOINT SWELLING [None]
  - PAIN IN EXTREMITY [None]
  - SWELLING [None]
  - URINARY RETENTION [None]
